FAERS Safety Report 8721466 (Version 3)
Quarter: 2012Q4

REPORT INFORMATION
  Report Type: 
  Country: BR (occurrence: BR)
  Receive Date: 20120813
  Receipt Date: 20121025
  Transmission Date: 20130627
  Serious: Yes (Death, Hospitalization)
  Sender: FDA-Public Use
  Company Number: BR-GILEAD-2012-0059608

PATIENT
  Sex: Female

DRUGS (9)
  1. AMBRISENTAN [Suspect]
     Indication: PRODUCT USED FOR UNKNOWN INDICATION
     Dosage: UNK
     Route: 048
     Dates: start: 20051025
  2. LEVOTHYROXINE [Suspect]
  3. CALCIUM [Suspect]
  4. PREDNISONE [Suspect]
  5. LISADOR [Suspect]
  6. OMEPRAZOLE [Suspect]
  7. FLUOXETINE [Suspect]
  8. AZATHIOPRINE [Suspect]
  9. CHLOROQUINE PHOSPHATE [Suspect]

REACTIONS (6)
  - Oesophageal carcinoma [Fatal]
  - Systemic lupus erythematosus [Fatal]
  - Condition aggravated [Fatal]
  - Decreased appetite [Unknown]
  - Asthenia [Unknown]
  - Asthenia [Unknown]
